FAERS Safety Report 18451244 (Version 3)
Quarter: 2021Q1

REPORT INFORMATION
  Report Type: Spontaneous
  Country: US (occurrence: US)
  Receive Date: 20201102
  Receipt Date: 20210225
  Transmission Date: 20210419
  Serious: No
  Sender: FDA-Public Use
  Company Number: US-SA-2020SA306519

PATIENT
  Age: 24 Year
  Sex: Male

DRUGS (4)
  1. DUPIXENT [Suspect]
     Active Substance: DUPILUMAB
     Dosage: UNK, 1X
     Route: 058
     Dates: start: 20201015, end: 20201015
  2. DUPIXENT [Suspect]
     Active Substance: DUPILUMAB
     Dosage: UNK, 1X
     Route: 058
     Dates: start: 20201010, end: 20201010
  3. DUPIXENT [Suspect]
     Active Substance: DUPILUMAB
     Dosage: UNK
     Route: 058
  4. DUPIXENT [Suspect]
     Active Substance: DUPILUMAB
     Indication: ASTHMA
     Dosage: UNK, 1X
     Route: 058
     Dates: start: 20200930, end: 20200930

REACTIONS (4)
  - Chest pain [Recovered/Resolved]
  - Off label use [Unknown]
  - Anxiety [Unknown]
  - Unevaluable event [Unknown]

NARRATIVE: CASE EVENT DATE: 20200930
